FAERS Safety Report 8345568-8 (Version None)
Quarter: 2012Q2

REPORT INFORMATION
  Report Type: 
  Country: None (occurrence: None)
  Receive Date: 20120508
  Receipt Date: 20110712
  Transmission Date: 20120825
  Serious: No
  Sender: FDA-Public Use
  Company Number: US-BAUSCH-2011BL004692

PATIENT
  Age: 64 Year
  Sex: Male

DRUGS (7)
  1. ALAWAY [Suspect]
     Indication: LACRIMATION INCREASED
     Route: 047
     Dates: start: 20090101, end: 20090101
  2. ALAWAY [Suspect]
     Indication: OFF LABEL USE
     Route: 047
     Dates: start: 20090101, end: 20090101
  3. ALREX [Suspect]
     Indication: LACRIMATION INCREASED
     Route: 047
     Dates: start: 20091001, end: 20091001
  4. ALREX [Suspect]
     Indication: OFF LABEL USE
     Route: 047
     Dates: start: 20091001, end: 20091001
  5. SOOTHE XP [Suspect]
     Indication: LACRIMATION INCREASED
     Route: 047
     Dates: start: 20090101, end: 20090101
  6. SOOTHE XP [Suspect]
     Indication: OFF LABEL USE
     Route: 047
     Dates: start: 20090101, end: 20090101
  7. MULTI-VITAMINS [Concomitant]

REACTIONS (2)
  - LACRIMATION INCREASED [None]
  - DRUG INEFFECTIVE FOR UNAPPROVED INDICATION [None]
